FAERS Safety Report 7377707-X (Version None)
Quarter: 2011Q1

REPORT INFORMATION
  Report Type: 
  Country: None (occurrence: None)
  Receive Date: 20110328
  Receipt Date: 20110323
  Transmission Date: 20110831
  Serious: Yes (Death, Other)
  Sender: FDA-Public Use
  Company Number: JP-GENZYME-THYM-1001800

PATIENT
  Sex: Male
  Weight: 53 kg

DRUGS (15)
  1. ITRACONAZOLE [Concomitant]
     Indication: ANTIFUNGAL PROPHYLAXIS
     Dosage: UNK
     Dates: start: 20100608, end: 20100614
  2. LINEZOLID [Concomitant]
     Indication: ANTIBIOTIC PROPHYLAXIS
     Dosage: UNK
     Dates: start: 20100608, end: 20100615
  3. AMPHOTERICIN B [Concomitant]
     Indication: ANTIFUNGAL PROPHYLAXIS
     Dosage: UNK
     Dates: start: 20100702, end: 20100707
  4. BIAPENEM [Concomitant]
     Indication: ANTIBIOTIC PROPHYLAXIS
     Dosage: UNK
     Dates: start: 20100608, end: 20100613
  5. PIPERACILLIN SODIUM W [Concomitant]
     Indication: ANTIBIOTIC PROPHYLAXIS
     Dosage: UNK
     Dates: start: 20100614, end: 20100623
  6. CEFEPIME [Concomitant]
     Indication: ANTIBIOTIC PROPHYLAXIS
     Dosage: UNK
     Dates: start: 20100624, end: 20100626
  7. VORICONAZOLE [Concomitant]
     Indication: ANTIFUNGAL PROPHYLAXIS
     Dosage: UNK
     Dates: start: 20100615, end: 20100701
  8. FILGRASTIM [Concomitant]
     Indication: INFECTION PROPHYLAXIS
     Dosage: UNK
     Dates: start: 20100608, end: 20100707
  9. TEICOPLANIN [Concomitant]
     Indication: ANTIBIOTIC PROPHYLAXIS
     Dosage: UNK
     Dates: start: 20100616, end: 20100707
  10. PLATELETS [Concomitant]
     Indication: APLASTIC ANAEMIA
     Dosage: UNK
     Dates: start: 20100608, end: 20100707
  11. THYMOGLOBULIN [Suspect]
     Indication: APLASTIC ANAEMIA
     Dosage: 200 MG, QD
     Route: 042
     Dates: start: 20100608, end: 20100612
  12. PREDNISOLONE [Concomitant]
     Indication: PREMEDICATION
     Dosage: UNK
     Dates: start: 20100613, end: 20100704
  13. MEROPENEM [Concomitant]
     Indication: ANTIBIOTIC PROPHYLAXIS
     Dosage: UNK
     Dates: start: 20100627, end: 20100707
  14. THYMOGLOBULIN [Suspect]
     Dosage: UNK
     Route: 042
     Dates: start: 20090616, end: 20090620
  15. METHYLPREDNISOLONE SODIUM SUCCINATE [Concomitant]
     Indication: PREMEDICATION
     Dosage: UNK
     Dates: start: 20100608, end: 20100612

REACTIONS (4)
  - APLASTIC ANAEMIA [None]
  - PULMONARY HAEMORRHAGE [None]
  - PLATELET COUNT DECREASED [None]
  - THERAPEUTIC RESPONSE DECREASED [None]
